FAERS Safety Report 25700717 (Version 1)
Quarter: 2025Q3

REPORT INFORMATION
  Report Type: Spontaneous
  Country: US (occurrence: US)
  Receive Date: 20250819
  Receipt Date: 20250819
  Transmission Date: 20251021
  Serious: No
  Sender: SANOFI AVENTIS
  Company Number: US-SA-2025SA246376

PATIENT
  Age: 7 Year
  Sex: Male

DRUGS (1)
  1. DUPIXENT [Suspect]
     Active Substance: DUPILUMAB
     Indication: Dermatitis atopic
     Dosage: 300 MG, QOW
     Route: 058
     Dates: start: 202209, end: 202503

REACTIONS (6)
  - Blister [Recovering/Resolving]
  - Eosinophilic oesophagitis [Recovering/Resolving]
  - Flushing [Recovering/Resolving]
  - Pigmentation disorder [Recovering/Resolving]
  - Rebound eczema [Recovering/Resolving]
  - Injection site pain [Recovering/Resolving]
